FAERS Safety Report 15832087 (Version 2)
Quarter: 2019Q2

REPORT INFORMATION
  Report Type: Spontaneous
  Country: JP (occurrence: JP)
  Receive Date: 20190116
  Receipt Date: 20190410
  Transmission Date: 20190711
  Serious: Yes (Hospitalization, Other)
  Sender: FDA-Public Use
  Company Number: JP-BRISTOL-MYERS SQUIBB COMPANY-BMS-2019-003159

PATIENT
  Age: 63 Year
  Sex: Male

DRUGS (2)
  1. OPDIVO [Suspect]
     Active Substance: NIVOLUMAB
     Indication: GASTROINTESTINAL MELANOMA
     Dosage: 80 MG, UNK
     Route: 041
     Dates: start: 20181009, end: 20181211
  2. YERVOY [Suspect]
     Active Substance: IPILIMUMAB
     Indication: GASTROINTESTINAL MELANOMA
     Dosage: 3 MG/KG
     Route: 041
     Dates: start: 20181009, end: 20181211

REACTIONS (1)
  - Haemolytic anaemia [Not Recovered/Not Resolved]

NARRATIVE: CASE EVENT DATE: 20190104
